FAERS Safety Report 7438163-6 (Version None)
Quarter: 2011Q2

REPORT INFORMATION
  Report Type: 
  Country: None (occurrence: None)
  Receive Date: 20110421
  Receipt Date: 20110421
  Transmission Date: 20111010
  Serious: Yes (Death)
  Sender: FDA-Public Use
  Company Number: None

PATIENT
  Age: 79 Year
  Sex: Female

DRUGS (10)
  1. DECADRON [Concomitant]
  2. TRAZODONE HCL [Concomitant]
  3. REVLIMID [Suspect]
     Indication: MULTIPLE MYELOMA
     Dosage: 15MG EVERY OTHER DAY ORALLY
     Route: 048
     Dates: start: 20100101, end: 20100601
  4. REVLIMID [Suspect]
     Indication: MULTIPLE MYELOMA
     Dosage: 15MG EVERY OTHER DAY ORALLY
     Route: 048
     Dates: start: 20080601, end: 20080901
  5. REVLIMID [Suspect]
     Indication: MULTIPLE MYELOMA
     Dosage: 15MG EVERY OTHER DAY ORALLY
     Route: 048
     Dates: start: 20090601, end: 20090901
  6. LOPRESSOR [Concomitant]
  7. ZOCOR [Concomitant]
  8. PERCOCET [Concomitant]
  9. MAXZIDE [Concomitant]
  10. PEPCID [Concomitant]

REACTIONS (3)
  - HAEMATOCRIT DECREASED [None]
  - FATIGUE [None]
  - HAEMOGLOBIN DECREASED [None]
